FAERS Safety Report 24131772 (Version 1)
Quarter: 2024Q3

REPORT INFORMATION
  Report Type: Spontaneous
  Country: US (occurrence: None)
  Receive Date: 20240723
  Receipt Date: 20240723
  Transmission Date: 20241017
  Serious: No
  Sender: Public
  Company Number: None

PATIENT
  Age: 61 Year
  Sex: Female

DRUGS (1)
  1. XPHOZAH [Suspect]
     Active Substance: TENAPANOR HYDROCHLORIDE
     Indication: Device dependence
     Dosage: FREQUENCY : TWICE A DAY;?
     Route: 048
     Dates: start: 20240501, end: 20240505

REACTIONS (2)
  - Diarrhoea [None]
  - Refusal of treatment by patient [None]

NARRATIVE: CASE EVENT DATE: 20240501
